FAERS Safety Report 10367512 (Version 1)
Quarter: 2014Q3

REPORT INFORMATION
  Report Type: Spontaneous
  Country: US (occurrence: None)
  Receive Date: 20140806
  Receipt Date: 20140806
  Transmission Date: 20150326
  Serious: Yes (Hospitalization)
  Sender: FDA-Public Use
  Company Number: None

PATIENT
  Age: 76 Year
  Sex: Female
  Weight: 72.58 kg

DRUGS (3)
  1. CLOPIDOGREL [Concomitant]
     Active Substance: CLOPIDOGREL BISULFATE
  2. ASPIRIN. [Concomitant]
     Active Substance: ASPIRIN
  3. CRESTOR [Suspect]
     Active Substance: ROSUVASTATIN CALCIUM
     Indication: BLOOD CHOLESTEROL
     Dosage: 10 MG, 1 PILL, ONE A DAY, BY MOUTH
     Route: 048
     Dates: start: 20120827, end: 20140707

REACTIONS (5)
  - Headache [None]
  - Therapy change [None]
  - Chest pain [None]
  - Memory impairment [None]
  - Dizziness [None]

NARRATIVE: CASE EVENT DATE: 20140501
